FAERS Safety Report 26047699 (Version 2)
Quarter: 2025Q4

REPORT INFORMATION
  Report Type: Report from Study
  Country: US (occurrence: US)
  Receive Date: 20251114
  Receipt Date: 20251231
  Transmission Date: 20260117
  Serious: No
  Sender: PFIZER
  Company Number: US-PFIZER INC-PV202500133503

PATIENT
  Age: 67 Year
  Sex: Male
  Weight: 88.435 kg

DRUGS (5)
  1. TALZENNA [Suspect]
     Active Substance: TALAZOPARIB TOSYLATE
     Indication: Prostate cancer
     Dosage: 0.5 MG, DAILY
     Route: 048
     Dates: start: 20251018
  2. VITAMIN D3 [Concomitant]
     Active Substance: CHOLECALCIFEROL
     Dosage: 10000 IU, DAILY
     Route: 048
  3. XTANDI [Concomitant]
     Active Substance: ENZALUTAMIDE
     Dosage: 160 MG, DAILY (TAKE 4 CAPSULE)
     Route: 048
  4. MOUNJARO [Concomitant]
     Active Substance: TIRZEPATIDE
     Dosage: 2.5 MG, WEEKLY (2.5 MG/0.5 ML PEN INJECTOR SKIN ONCE A WEEK SAT)
  5. TIMOLOL [Concomitant]
     Active Substance: TIMOLOL
     Dosage: UNK, AS NEEDED (PLACE 1 DROP INTO BOTH EYES DAILY AS NEEDED, OPHTHALMIC SOLUTION)
     Route: 047

REACTIONS (4)
  - Parosmia [Unknown]
  - Insomnia [Unknown]
  - Fatigue [Recovering/Resolving]
  - Taste disorder [Unknown]
